FAERS Safety Report 7234954-5 (Version None)
Quarter: 2011Q1

REPORT INFORMATION
  Report Type: 
  Country: None (occurrence: None)
  Receive Date: 20110120
  Receipt Date: 20110112
  Transmission Date: 20110831
  Serious: Yes (Other)
  Sender: FDA-Public Use
  Company Number: US-ASTELLAS-2011US000183

PATIENT

DRUGS (1)
  1. PROGRAF [Suspect]
     Indication: INTESTINAL TRANSPLANT
     Dosage: UNK
     Route: 065

REACTIONS (6)
  - INTESTINE TRANSPLANT REJECTION [None]
  - HYPERTROPHIC OSTEOARTHROPATHY [None]
  - THROMBOTIC MICROANGIOPATHY [None]
  - BRONCHOPULMONARY ASPERGILLOSIS [None]
  - CARDIOPULMONARY FAILURE [None]
  - ENTEROCOCCAL BACTERAEMIA [None]
